FAERS Safety Report 23163555 (Version 5)
Quarter: 2024Q3

REPORT INFORMATION
  Report Type: Spontaneous
  Country: KR (occurrence: KR)
  Receive Date: 20231109
  Receipt Date: 20240921
  Transmission Date: 20241017
  Serious: Yes (Hospitalization, Other)
  Sender: ACCORD
  Company Number: KR-Accord-389459

PATIENT
  Age: 82 Year
  Sex: Female
  Weight: 43.0 kg

DRUGS (18)
  1. CARBOPLATIN [Suspect]
     Active Substance: CARBOPLATIN
     Indication: Squamous cell carcinoma of lung
     Dosage: 6 AUC, 1Q3W
     Route: 042
     Dates: start: 20230830, end: 20230830
  2. PACLITAXEL [Suspect]
     Active Substance: PACLITAXEL
     Indication: Squamous cell carcinoma of lung
     Dosage: 1Q3W
     Route: 042
     Dates: start: 20230830, end: 20230830
  3. HERBALS\TURMERIC [Suspect]
     Active Substance: HERBALS\TURMERIC
     Indication: Supplementation therapy
     Dosage: 20 PILL
     Route: 048
     Dates: start: 20231015, end: 20231015
  4. ALLEGRA [Concomitant]
     Active Substance: FEXOFENADINE HYDROCHLORIDE
     Dates: start: 20230911
  5. AZELASTINE HYDROCHLORIDE [Concomitant]
     Active Substance: AZELASTINE HYDROCHLORIDE
     Dates: start: 20230906
  6. CYANOCOBALAMIN W/PYRIDOXINE [Concomitant]
     Dates: start: 20230906, end: 20230926
  7. CYANOCOBALAMIN [Concomitant]
     Active Substance: CYANOCOBALAMIN
     Dates: start: 20230906
  8. DILTIAZEM HYDROCHLORIDE [Concomitant]
     Active Substance: DILTIAZEM HYDROCHLORIDE
     Dates: start: 20230913
  9. LANSOPRAZOLE [Concomitant]
     Active Substance: LANSOPRAZOLE
     Dates: start: 20230821
  10. LACTICARE [Concomitant]
     Dates: start: 20230906
  11. MEGACE [Concomitant]
     Active Substance: MEGESTROL ACETATE
     Dates: start: 20230821
  12. OXYCODONE HYDROCHLORIDE [Concomitant]
     Active Substance: OXYCODONE HYDROCHLORIDE
     Dates: start: 20230821
  13. PEMBROLIZUMAB [Concomitant]
     Active Substance: PEMBROLIZUMAB
     Indication: Squamous cell carcinoma of lung
     Dosage: 1Q3W
     Route: 058
     Dates: start: 20230830, end: 20231004
  14. PROPAFENONE [Concomitant]
     Active Substance: PROPAFENONE
     Dates: start: 20230913
  15. PREDNISOLONE [Concomitant]
     Active Substance: PREDNISOLONE
     Dates: start: 20230906, end: 20231102
  16. NALOXONE HYDROCHLORIDE\OXYCODONE HYDROCHLORIDE [Concomitant]
     Active Substance: NALOXONE HYDROCHLORIDE\OXYCODONE HYDROCHLORIDE
     Dates: start: 20230821
  17. CARBOPLATIN [Suspect]
     Active Substance: CARBOPLATIN
     Indication: Squamous cell carcinoma of lung
     Dosage: 5 AUC, 1Q3W
     Route: 042
     Dates: start: 20231003, end: 20231004
  18. PACLITAXEL [Suspect]
     Active Substance: PACLITAXEL
     Indication: Squamous cell carcinoma of lung
     Dosage: 1Q3W
     Route: 042
     Dates: start: 20231004, end: 20231004

REACTIONS (3)
  - Urinary tract infection [Recovered/Resolved]
  - Alanine aminotransferase increased [Recovered/Resolved]
  - Aspartate aminotransferase increased [Recovered/Resolved]

NARRATIVE: CASE EVENT DATE: 20231016
